FAERS Safety Report 9956587 (Version 2)
Quarter: 2014Q1

REPORT INFORMATION
  Report Type: Report from Study
  Country: US (occurrence: US)
  Receive Date: 20140304
  Receipt Date: 20140304
  Transmission Date: 20141002
  Serious: No
  Sender: FDA-Public Use
  Company Number: US-ABBVIE-13P-163-1085486-00

PATIENT
  Age: 72 Year
  Sex: Female

DRUGS (19)
  1. HUMIRA [Suspect]
     Indication: CROHN^S DISEASE
     Route: 058
     Dates: start: 20121219
  2. CRESTOR [Concomitant]
     Indication: ARTERIAL DISORDER
  3. LOSARTAN [Concomitant]
     Indication: HYPERTENSION
     Dosage: 100 MG DAILY
  4. CHLORTHALIDONE [Concomitant]
     Indication: HYPERTENSION
     Dosage: 25 MG DAILY
  5. CHLORTHALIDONE [Concomitant]
     Indication: CARDIAC DISORDER
  6. ASPIRIN [Concomitant]
     Indication: ARTHRITIS
     Dosage: 325 MG DAILY
  7. ASPIRIN [Concomitant]
     Indication: CARDIAC DISORDER
  8. VITAMIN D [Concomitant]
     Indication: PRODUCT USED FOR UNKNOWN INDICATION
     Dosage: DOCTOR PRESCRIBED
  9. VITAMIN B6 [Concomitant]
     Indication: ARTHROPATHY
  10. BIOTIN [Concomitant]
     Indication: SKIN DISORDER
  11. FOLIC ACID [Concomitant]
     Indication: PRODUCT USED FOR UNKNOWN INDICATION
  12. CO Q-10 [Concomitant]
     Indication: MUSCLE SPASMS
  13. POTASSIUM [Concomitant]
     Indication: MUSCLE SPASMS
  14. POTASSIUM [Concomitant]
     Indication: BLOOD POTASSIUM DECREASED
  15. MAGNESIUM [Concomitant]
     Indication: CARDIAC DISORDER
  16. ATENOLOL [Concomitant]
     Indication: HEART RATE IRREGULAR
     Dosage: 25 MG DAILY
  17. LANTUS [Concomitant]
     Indication: DIABETES MELLITUS
     Dosage: AT BEDTIME / SLIDING SCALE
  18. HUMALOG [Concomitant]
     Indication: DIABETES MELLITUS
     Dosage: 6-8 UNITS / SLIDING SCALE WITH MEALS
  19. PANTOTHENIC ACID [Concomitant]
     Indication: ARTHROPATHY

REACTIONS (2)
  - Injection site pruritus [Recovered/Resolved]
  - Injection site erythema [Recovered/Resolved]
